FAERS Safety Report 5313516-0 (Version None)
Quarter: 2007Q1

REPORT INFORMATION
  Report Type: 
  Country: None (occurrence: None)
  Receive Date: 20070130
  Receipt Date: 20060417
  Transmission Date: 20070707
  Serious: Yes (Other)
  Sender: FDA-Public Use
  Company Number: 145359USA

PATIENT
  Sex: Female

DRUGS (1)
  1. COPAXONE [Suspect]
     Indication: MULTIPLE SCLEROSIS
     Dosage: 20 MG, SUBCUTANEOUS
     Route: 058
     Dates: start: 20060601

REACTIONS (5)
  - BACK PAIN [None]
  - CHEST DISCOMFORT [None]
  - CHILLS [None]
  - MUSCULOSKELETAL PAIN [None]
  - SWOLLEN TONGUE [None]
